FAERS Safety Report 10639865 (Version 1)
Quarter: 2014Q4

REPORT INFORMATION
  Report Type: Spontaneous
  Country: FR (occurrence: FR)
  Receive Date: 20141209
  Receipt Date: 20141209
  Transmission Date: 20150529
  Serious: Yes (Hospitalization)
  Sender: FDA-Public Use
  Company Number: PHHY2014FR156182

PATIENT
  Age: 30 Year
  Sex: Male
  Weight: 87 kg

DRUGS (5)
  1. SPIFEN [Suspect]
     Active Substance: IBUPROFEN
     Indication: DERMATOPHYTOSIS
     Route: 065
     Dates: start: 20140917, end: 20140919
  2. LAMICTAL [Suspect]
     Active Substance: LAMOTRIGINE
     Indication: DRUG DISPENSING ERROR
     Dosage: 200 MG, QD
     Route: 048
     Dates: start: 20140917, end: 20141008
  3. NEORAL [Suspect]
     Active Substance: CYCLOSPORINE
     Indication: TOXIC EPIDERMAL NECROLYSIS
     Dosage: 1.5 MG/KG, BID
     Route: 065
     Dates: start: 20141012, end: 20141019
  4. PARIET [Concomitant]
     Active Substance: RABEPRAZOLE SODIUM
     Indication: GASTRODUODENAL ULCER
     Route: 065
  5. LAMISIL [Suspect]
     Active Substance: TERBINAFINE HYDROCHLORIDE
     Indication: PRODUCT USED FOR UNKNOWN INDICATION
     Dosage: 250 MG, UNK
     Route: 065

REACTIONS (9)
  - Ocular hyperaemia [Recovering/Resolving]
  - Anorectal disorder [Recovering/Resolving]
  - Toxic epidermal necrolysis [Recovering/Resolving]
  - Aphthous stomatitis [Recovering/Resolving]
  - Genital ulceration [Recovering/Resolving]
  - Nasal ulcer [Recovering/Resolving]
  - Scrotal oedema [Recovering/Resolving]
  - Hepatocellular injury [Unknown]
  - Cholestasis [Unknown]

NARRATIVE: CASE EVENT DATE: 201410
